FAERS Safety Report 12571048 (Version 3)
Quarter: 2016Q3

REPORT INFORMATION
  Report Type: Spontaneous
  Country: US (occurrence: US)
  Receive Date: 20160719
  Receipt Date: 20160901
  Transmission Date: 20161109
  Serious: Yes (Hospitalization, Other)
  Sender: FDA-Public Use
  Company Number: US-ASTRAZENECA-2016SE75848

PATIENT
  Age: 24896 Day
  Sex: Female

DRUGS (25)
  1. FENTANYL. [Concomitant]
     Active Substance: FENTANYL
  2. RESTORIL [Concomitant]
     Active Substance: TEMAZEPAM
     Route: 048
  3. 16 TOTAL MEDICATIONS [Concomitant]
  4. DURAGESIC [Concomitant]
     Active Substance: FENTANYL
  5. BYSTOLIC [Concomitant]
     Active Substance: NEBIVOLOL HYDROCHLORIDE
     Route: 048
  6. OPANA [Concomitant]
     Active Substance: OXYMORPHONE HYDROCHLORIDE
     Route: 048
  7. GLUCOPHAGE [Concomitant]
     Active Substance: METFORMIN HYDROCHLORIDE
     Route: 048
  8. LEVOTHYROXINE. [Concomitant]
     Active Substance: LEVOTHYROXINE
     Route: 048
  9. SYMBICORT [Suspect]
     Active Substance: BUDESONIDE\FORMOTEROL FUMARATE DIHYDRATE
     Indication: CHRONIC OBSTRUCTIVE PULMONARY DISEASE
     Dosage: 160/4.5MCG, 2 PUFFS TWICE A DAY
     Route: 055
     Dates: start: 20140613
  10. INSULIN [Concomitant]
     Active Substance: INSULIN NOS
  11. GEODON [Concomitant]
     Active Substance: ZIPRASIDONE HYDROCHLORIDE\ZIPRASIDONE MESYLATE
     Route: 048
  12. NEXIUM [Concomitant]
     Active Substance: ESOMEPRAZOLE MAGNESIUM
  13. OLEPTRO [Concomitant]
     Active Substance: TRAZODONE HYDROCHLORIDE
     Route: 048
  14. LINZESS [Concomitant]
     Active Substance: LINACLOTIDE
     Dosage: 290.0MG UNKNOWN
     Route: 048
  15. BUSPAR [Concomitant]
     Active Substance: BUSPIRONE HYDROCHLORIDE
     Route: 048
  16. HYDRALAZINE [Concomitant]
     Active Substance: HYDRALAZINE HYDROCHLORIDE
     Dosage: AS NEEDED
     Route: 042
  17. TRAZODONE [Concomitant]
     Active Substance: TRAZODONE HYDROCHLORIDE
  18. LUVOX [Concomitant]
     Active Substance: FLUVOXAMINE MALEATE
     Route: 048
  19. NEURONTIN [Concomitant]
     Active Substance: GABAPENTIN
     Route: 048
  20. OXYCONTIN [Concomitant]
     Active Substance: OXYCODONE HYDROCHLORIDE
     Route: 048
  21. MYRBETRIQ [Concomitant]
     Active Substance: MIRABEGRON
     Route: 048
  22. VOLTAREN [Concomitant]
     Active Substance: DICLOFENAC SODIUM
     Route: 048
  23. NARCAN [Concomitant]
     Active Substance: NALOXONE HYDROCHLORIDE
  24. DIOVAN [Concomitant]
     Active Substance: VALSARTAN
     Dosage: 320/25 MG, 1 TAB P.O. EVERY DAY
     Route: 048
  25. NORVASC [Concomitant]
     Active Substance: AMLODIPINE BESYLATE
     Route: 048

REACTIONS (11)
  - Oxygen saturation decreased [Unknown]
  - Fibromyalgia [Unknown]
  - Device malfunction [Unknown]
  - Dyspnoea exertional [Unknown]
  - Fall [Unknown]
  - Arthralgia [Unknown]
  - Back disorder [Unknown]
  - Gait disturbance [Unknown]
  - Incoherent [Unknown]
  - Drug dose omission [Unknown]
  - Intentional product misuse [Unknown]

NARRATIVE: CASE EVENT DATE: 20160616
